FAERS Safety Report 8678587 (Version 2)
Quarter: 2013Q2

REPORT INFORMATION
  Report Type: Spontaneous
  Country: US (occurrence: None)
  Receive Date: 20120406
  Receipt Date: 20120705
  Transmission Date: 20140414
  Serious: Yes (Hospitalization)
  Sender: FDA-Public Use
  Company Number: US-CYPR-2011-000086

PATIENT
  Age: 78 Year
  Sex: Male
  Weight: 104.33 kg

DRUGS (6)
  1. CLOPIDOGREL [Suspect]
     Indication: ANTIPLATELET THERAPY
     Dosage: (75 MG ORAL), (75 MG ORAL)
     Route: 048
     Dates: start: 20110406, end: 20111107
  2. ALLOPURINOL [Concomitant]
  3. DIOVAN [Concomitant]
  4. HYDROCHLOROTHIAZIDE [Concomitant]
  5. SIMVASTATIN [Concomitant]
  6. CYPHER STENT [Concomitant]

REACTIONS (2)
  - LUMBAR SPINAL STENOSIS [None]
  - Spinal column stenosis [None]
